FAERS Safety Report 15373157 (Version 1)
Quarter: 2018Q3

REPORT INFORMATION
  Report Type: Spontaneous
  Country: FR (occurrence: FR)
  Receive Date: 20180912
  Receipt Date: 20180912
  Transmission Date: 20181010
  Serious: Yes (Hospitalization)
  Sender: FDA-Public Use
  Company Number: FR-TEVA-2018-FR-925753

PATIENT
  Age: 77 Year
  Sex: Male

DRUGS (9)
  1. LOVENOX [Concomitant]
     Active Substance: ENOXAPARIN SODIUM
     Dosage: 4000 NCI DAILY;
     Route: 058
     Dates: start: 20180526, end: 20180527
  2. PARACETAMOL [Concomitant]
     Active Substance: ACETAMINOPHEN
     Dosage: 4 GRAM DAILY;
     Route: 042
     Dates: start: 20180526, end: 20180529
  3. HYDROXYZINE ARROW [Concomitant]
     Active Substance: HYDROXYZINE HYDROCHLORIDE
     Dosage: 50 MILLIGRAM DAILY;
     Route: 048
     Dates: start: 20180528, end: 20180528
  4. AMOXICILLINE [Suspect]
     Active Substance: AMOXICILLIN
     Indication: ENDOCARDITIS
     Dosage: 12 GRAM DAILY;
     Route: 042
     Dates: start: 20180526, end: 20180527
  5. CEFTRIAXONE SODIQUE [Concomitant]
     Active Substance: CEFTRIAXONE SODIUM
     Dosage: 4 GRAM DAILY;
     Route: 041
     Dates: start: 20180526, end: 20180604
  6. DEXAMETHASONE. [Concomitant]
     Active Substance: DEXAMETHASONE
     Dosage: 40 MILLIGRAM DAILY;
     Route: 041
     Dates: start: 20180526, end: 20180528
  7. TERBUTALINE (SULFATE DE) [Concomitant]
     Dosage: 15 MILLIGRAM DAILY;
     Route: 055
     Dates: start: 20180527, end: 20180604
  8. PRAVASTATINE SODIQUE [Concomitant]
     Active Substance: PRAVASTATIN SODIUM
     Dosage: 20 MILLIGRAM DAILY;
     Route: 048
     Dates: start: 20180529, end: 20180603
  9. KARDEGIC [Concomitant]
     Active Substance: ASPIRIN DL-LYSINE
     Dosage: 75 MILLIGRAM DAILY;
     Route: 048
     Dates: start: 20180526, end: 20180604

REACTIONS (2)
  - Acute kidney injury [Recovered/Resolved]
  - Crystalluria [Recovered/Resolved]

NARRATIVE: CASE EVENT DATE: 20180128
